FAERS Safety Report 5673791-X (Version None)
Quarter: 2008Q1

REPORT INFORMATION
  Report Type: 
  Country: None (occurrence: None)
  Receive Date: 20080319
  Receipt Date: 20080307
  Transmission Date: 20080703
  Serious: Yes (Other)
  Sender: FDA-Public Use
  Company Number: US-PFIZER INC-2008021931

PATIENT
  Sex: Female
  Weight: 81.363 kg

DRUGS (1)
  1. LYRICA [Suspect]
     Indication: RADICULITIS BRACHIAL
     Route: 048

REACTIONS (7)
  - BALANCE DISORDER [None]
  - BLOOD PRESSURE INCREASED [None]
  - CONSTIPATION [None]
  - DIZZINESS [None]
  - DRY MOUTH [None]
  - INCREASED APPETITE [None]
  - PAIN [None]
